FAERS Safety Report 19437086 (Version 4)
Quarter: 2021Q3

REPORT INFORMATION
  Report Type: Report from Study
  Country: IE (occurrence: IE)
  Receive Date: 20210618
  Receipt Date: 20210902
  Transmission Date: 20211014
  Serious: Yes (Other)
  Sender: FDA-Public Use
  Company Number: IE-MYLANLABS-2021M1035767

PATIENT
  Age: 59 Year
  Sex: Male

DRUGS (28)
  1. DEXAMETHASONE. [Suspect]
     Active Substance: DEXAMETHASONE
     Indication: PLASMA CELL MYELOMA
     Dosage: 20 MILLIGRAM
     Route: 065
  2. KYPROLIS [Suspect]
     Active Substance: CARFILZOMIB
     Dosage: 108 MILLIGRAM, Q2WK
     Route: 042
  3. KYPROLIS [Suspect]
     Active Substance: CARFILZOMIB
     Dosage: 108 MILLIGRAM, Q2WK
     Route: 042
  4. KYPROLIS [Suspect]
     Active Substance: CARFILZOMIB
     Dosage: 108 MILLIGRAM, Q2WK
     Route: 042
  5. KYPROLIS [Suspect]
     Active Substance: CARFILZOMIB
     Dosage: 108 MILLIGRAM, Q2WK
     Route: 042
  6. KYPROLIS [Suspect]
     Active Substance: CARFILZOMIB
     Dosage: 108 MILLIGRAM, Q2WK
     Route: 042
  7. VALACICLOVIR [Concomitant]
     Active Substance: VALACYCLOVIR HYDROCHLORIDE
     Dosage: 500 MILLIGRAM, QD
  8. DEXAMETHASONE. [Suspect]
     Active Substance: DEXAMETHASONE
     Dosage: 40 MILLIGRAM, QWK
     Route: 065
     Dates: start: 20200320
  9. KYPROLIS [Suspect]
     Active Substance: CARFILZOMIB
     Dosage: 108 MILLIGRAM, Q2WK
     Route: 042
  10. KYPROLIS [Suspect]
     Active Substance: CARFILZOMIB
     Dosage: 108 MILLIGRAM, Q2WK
     Route: 042
  11. KYPROLIS [Suspect]
     Active Substance: CARFILZOMIB
     Dosage: 108 MILLIGRAM, Q2WK
     Route: 042
  12. KYPROLIS [Suspect]
     Active Substance: CARFILZOMIB
     Dosage: 108 MILLIGRAM, Q2WK
     Route: 042
  13. KYPROLIS [Suspect]
     Active Substance: CARFILZOMIB
     Dosage: 108 MILLIGRAM, QWK
     Route: 042
     Dates: start: 20200609
  14. KYPROLIS [Suspect]
     Active Substance: CARFILZOMIB
     Dosage: 108 MILLIGRAM, Q2WK
     Route: 042
  15. ASPIRIN                            /00002701/ [Concomitant]
     Active Substance: ASPIRIN
     Dosage: 75 MILLIGRAM, QD
  16. KYPROLIS [Suspect]
     Active Substance: CARFILZOMIB
     Dosage: 56 MILLIGRAM/SQ. METER, QWK (DAY 1, 8 AND 15)
     Route: 042
     Dates: start: 20200320
  17. KYPROLIS [Suspect]
     Active Substance: CARFILZOMIB
     Dosage: 108 MILLIGRAM, Q2WK
     Route: 042
  18. ESOMEPRAZOLE. [Concomitant]
     Active Substance: ESOMEPRAZOLE MAGNESIUM
     Dosage: 40 MILLIGRAM, QD
  19. SEPTRIN [Concomitant]
     Active Substance: SULFAMETHOXAZOLE\TRIMETHOPRIM
     Dosage: 160 MILLIGRAM, QD
  20. KYPROLIS [Suspect]
     Active Substance: CARFILZOMIB
     Dosage: 108 MILLIGRAM, Q2WK
     Route: 042
  21. POMALIDOMIDE [Suspect]
     Active Substance: POMALIDOMIDE
     Indication: PLASMA CELL MYELOMA
     Dosage: 4 MILLIGRAM (DAYS 1?21)
     Route: 065
     Dates: start: 20200320
  22. IDEOS [Concomitant]
     Active Substance: CALCIUM CARBONATE\CHOLECALCIFEROL
     Dosage: 1 APPLICATION, BID
  23. KYPROLIS [Suspect]
     Active Substance: CARFILZOMIB
     Dosage: 108 MILLIGRAM, QWK
     Route: 042
     Dates: start: 20200707
  24. TARGIN [Concomitant]
     Active Substance: NALOXONE HYDROCHLORIDE\OXYCODONE HYDROCHLORIDE
     Dosage: 5 MILLIGRAM, AS NECESSARY
  25. KYPROLIS [Suspect]
     Active Substance: CARFILZOMIB
     Indication: PLASMA CELL MYELOMA
     Dosage: 108 MILLIGRAM, Q2WK
     Route: 042
  26. KYPROLIS [Suspect]
     Active Substance: CARFILZOMIB
     Dosage: 108 MILLIGRAM, QWK
     Route: 042
     Dates: start: 20200512
  27. KYPROLIS [Suspect]
     Active Substance: CARFILZOMIB
     Dosage: 108 MILLIGRAM, QW (108 MILLIGRAM, QWK)
     Route: 042
     Dates: start: 20200616
  28. PARACETAMOL [Concomitant]
     Active Substance: ACETAMINOPHEN
     Dosage: 1000 MILLIGRAM, AS NECESSARY (PRN)

REACTIONS (8)
  - Cataract [Not Recovered/Not Resolved]
  - Depressed mood [Not Recovered/Not Resolved]
  - Muscle spasms [Recovering/Resolving]
  - Off label use [Unknown]
  - Blood pressure increased [Unknown]
  - Hypoaesthesia [Not Recovered/Not Resolved]
  - Muscle atrophy [Not Recovered/Not Resolved]
  - Haemoglobin decreased [Unknown]

NARRATIVE: CASE EVENT DATE: 2020
